FAERS Safety Report 7108250-0 (Version None)
Quarter: 2010Q4

REPORT INFORMATION
  Report Type: 
  Country: None (occurrence: None)
  Receive Date: 20101117
  Receipt Date: 20101110
  Transmission Date: 20110411
  Serious: Yes (Other)
  Sender: FDA-Public Use
  Company Number: US-US-EMD SERONO, INC.-232126K09USA

PATIENT
  Sex: Female
  Weight: 67 kg

DRUGS (8)
  1. REBIF [Suspect]
     Indication: MULTIPLE SCLEROSIS
     Route: 058
     Dates: start: 20061106
  2. STEROIDS [Concomitant]
     Route: 065
  3. LIPITOR [Concomitant]
     Indication: CARDIAC DISORDER
     Route: 048
     Dates: start: 20061001
  4. ZETIA [Concomitant]
     Indication: CARDIAC DISORDER
     Route: 048
     Dates: start: 20070301
  5. LOVAZA [Concomitant]
     Route: 048
     Dates: start: 20080708
  6. OSCAL [Concomitant]
     Route: 048
  7. MULTI-VITAMIN [Concomitant]
     Route: 048
  8. VITAMIN D [Concomitant]
     Route: 048

REACTIONS (2)
  - OSTEONECROSIS [None]
  - RHEUMATOID ARTHRITIS [None]
